FAERS Safety Report 25434551 (Version 4)
Quarter: 2025Q4

REPORT INFORMATION
  Report Type: Spontaneous
  Country: US (occurrence: US)
  Receive Date: 20250613
  Receipt Date: 20251017
  Transmission Date: 20260118
  Serious: Yes (Hospitalization, Other)
  Sender: SANOFI AVENTIS
  Company Number: US-SA-2025SA167164

PATIENT
  Age: 64 Year
  Sex: Female

DRUGS (17)
  1. DUPIXENT [Suspect]
     Active Substance: DUPILUMAB
     Indication: Chronic obstructive pulmonary disease
     Dosage: 300 MG, QOW
     Route: 058
     Dates: start: 20250428
  2. BETAMETHASONE DIPROPIONATE [Concomitant]
     Active Substance: BETAMETHASONE DIPROPIONATE
     Route: 061
     Dates: start: 20240917
  3. CHOLECALCIFEROL [Concomitant]
     Active Substance: CHOLECALCIFEROL
     Dosage: TAKE ONE TABLET (25 MCG TOTAL) BY MOUTH DAILY
     Route: 048
  4. ANASTROZOLE [Concomitant]
     Active Substance: ANASTROZOLE
     Dosage: UNK
     Route: 048
     Dates: start: 20241023, end: 20250908
  5. AZELASTINE [Concomitant]
     Active Substance: AZELASTINE
     Dosage: 1 SPRAY, EACH NOSTRIL
     Route: 045
     Dates: start: 20250730
  6. CALCIUM CITRATE\CHOLECALCIFEROL [Concomitant]
     Active Substance: CALCIUM CITRATE\CHOLECALCIFEROL
     Route: 048
  7. FAMOTIDINE [Concomitant]
     Active Substance: FAMOTIDINE
     Dosage: 1 DF, QD
     Route: 048
     Dates: start: 20240130
  8. FLUTICASONE PROPIONATE [Concomitant]
     Active Substance: FLUTICASONE PROPIONATE
     Dosage: UNK UNK, QD
     Route: 045
     Dates: start: 20241018
  9. FLUTICASONE FUROATE\UMECLIDINIUM BROMIDE\VILANTEROL TRIFENATATE [Concomitant]
     Active Substance: FLUTICASONE FUROATE\UMECLIDINIUM BROMIDE\VILANTEROL TRIFENATATE
     Dosage: 1 PIFF DAILY
     Route: 055
     Dates: start: 20250728
  10. GABAPENTIN [Concomitant]
     Active Substance: GABAPENTIN
     Dosage: 100 UNK, TID
     Route: 048
     Dates: start: 20240821
  11. IPRATROPIUM [Concomitant]
     Active Substance: IPRATROPIUM
     Dosage: UNK
     Route: 045
     Dates: start: 20240621
  12. MONTELUKAST [Concomitant]
     Active Substance: MONTELUKAST
     Indication: Bronchospasm
     Dosage: UNK
     Route: 048
     Dates: start: 20250728
  13. MONTELUKAST [Concomitant]
     Active Substance: MONTELUKAST
     Indication: Rhinorrhoea
  14. OMEPRAZOLE [Concomitant]
     Active Substance: OMEPRAZOLE
     Dosage: UNK UNK, QD
     Route: 048
     Dates: start: 20210330
  15. REVEFENACIN [Concomitant]
     Active Substance: REVEFENACIN
     Indication: Chronic obstructive pulmonary disease
     Dosage: UNK
     Dates: start: 20250728
  16. ZOLEDRONIC ACID [Concomitant]
     Active Substance: ZOLEDRONIC ACID
  17. ALBUTEROL [Concomitant]
     Active Substance: ALBUTEROL
     Indication: Wheezing
     Dosage: TAKE 3 ML (2,5 MG TOTAL) BY NEBULIZATION EVERY (FOUR) HOURS AS NEEDED
     Route: 055
     Dates: start: 20240925, end: 20250908

REACTIONS (23)
  - Pneumonia [Unknown]
  - Respiratory tract infection [Unknown]
  - Cough [Not Recovered/Not Resolved]
  - Sinus disorder [Not Recovered/Not Resolved]
  - Oropharyngeal pain [Unknown]
  - Tachycardia [Recovered/Resolved]
  - Obstructive sleep apnoea syndrome [Unknown]
  - Dyspepsia [Unknown]
  - Chronic respiratory failure [Unknown]
  - Hypoxia [Unknown]
  - Hypercapnia [Unknown]
  - Sepsis [Unknown]
  - Tachypnoea [Recovered/Resolved]
  - Leukocytosis [Not Recovered/Not Resolved]
  - Atelectasis [Unknown]
  - Acute respiratory failure [Unknown]
  - Spinal osteoarthritis [Unknown]
  - Bone demineralisation [Unknown]
  - Arteriosclerosis [Unknown]
  - Chronic obstructive pulmonary disease [Unknown]
  - Oedema peripheral [Unknown]
  - Sinusitis bacterial [Not Recovered/Not Resolved]
  - Malaise [Unknown]

NARRATIVE: CASE EVENT DATE: 20250101
